FAERS Safety Report 13088029 (Version 3)
Quarter: 2017Q2

REPORT INFORMATION
  Report Type: Spontaneous
  Country: US (occurrence: US)
  Receive Date: 20170105
  Receipt Date: 20170407
  Transmission Date: 20170830
  Serious: No
  Sender: FDA-Public Use
  Company Number: US-ASTRAZENECA-2016SF37201

PATIENT
  Age: 49 Year
  Sex: Female

DRUGS (1)
  1. BYDUREON [Suspect]
     Active Substance: EXENATIDE
     Indication: DIABETES MELLITUS
     Route: 058
     Dates: start: 2016

REACTIONS (6)
  - Injection site pruritus [Unknown]
  - Injection site mass [Not Recovered/Not Resolved]
  - Intentional device misuse [Unknown]
  - Product quality issue [Unknown]
  - Underdose [Unknown]
  - Injection site pain [Not Recovered/Not Resolved]

NARRATIVE: CASE EVENT DATE: 2016
